FAERS Safety Report 5293531-6 (Version None)
Quarter: 2007Q2

REPORT INFORMATION
  Report Type: 
  Country: None (occurrence: None)
  Receive Date: 20070411
  Receipt Date: 20070402
  Transmission Date: 20071010
  Serious: Yes (Disabling)
  Sender: FDA-Public Use
  Company Number: BE-GLAXOSMITHKLINE-B0465185A

PATIENT
  Age: 76 Year
  Sex: Female
  Weight: 76.7 kg

DRUGS (5)
  1. LAPATINIB [Suspect]
     Indication: BREAST CANCER METASTATIC
     Dosage: 1250MG PER DAY
     Route: 048
     Dates: start: 20070308
  2. CAPECITABINE [Suspect]
     Indication: BREAST CANCER METASTATIC
     Dosage: 1650MG TWICE PER DAY
     Route: 048
     Dates: start: 20070308
  3. LOORTAN [Concomitant]
     Indication: HYPERTENSION
     Dosage: 100MG PER DAY
     Route: 048
     Dates: start: 20020101
  4. DAFLON [Concomitant]
     Indication: VENOUS INSUFFICIENCY
     Dosage: 450MG TWICE PER DAY
     Route: 048
     Dates: start: 20020101
  5. FRAXIPARINE [Concomitant]
     Indication: PULMONARY EMBOLISM
     Dosage: .8ML PER DAY
     Route: 058
     Dates: start: 20070307

REACTIONS (3)
  - DIZZINESS [None]
  - FATIGUE [None]
  - GENERAL PHYSICAL HEALTH DETERIORATION [None]
